FAERS Safety Report 15202731 (Version 3)
Quarter: 2018Q3

REPORT INFORMATION
  Report Type: Spontaneous
  Country: DE (occurrence: DE)
  Receive Date: 20180726
  Receipt Date: 20180910
  Transmission Date: 20181010
  Serious: Yes (Death, Other)
  Sender: FDA-Public Use
  Company Number: PHHY2018DE050053

PATIENT
  Age: 71 Year
  Sex: Female

DRUGS (6)
  1. PROTHIPENDYL HYDROCHLORIDE [Interacting]
     Active Substance: PROTHIPENDYL HYDROCHLORIDE
     Indication: PRODUCT USED FOR UNKNOWN INDICATION
     Dosage: 80 MG, QD
     Route: 065
  2. LISALGIL [Suspect]
     Active Substance: METAMIZOLE SODIUM
     Dosage: 400 MG, QD
     Route: 065
  3. MELPERONE [Suspect]
     Active Substance: MELPERONE
     Indication: PRODUCT USED FOR UNKNOWN INDICATION
     Dosage: REGULAR MEDICATION
     Route: 065
  4. OLANZAPINE. [Suspect]
     Active Substance: OLANZAPINE
     Indication: PRODUCT USED FOR UNKNOWN INDICATION
     Dosage: UNK
     Route: 065
  5. METAMIZOLE [Concomitant]
     Active Substance: METAMIZOLE
     Indication: PRODUCT USED FOR UNKNOWN INDICATION
     Dosage: 400 MG, UNK
     Route: 065
  6. LISALGIL [Suspect]
     Active Substance: METAMIZOLE SODIUM
     Indication: PRODUCT USED FOR UNKNOWN INDICATION
     Dosage: 480 MG, QD
     Route: 065

REACTIONS (6)
  - Pulmonary oedema [Fatal]
  - Cardiotoxicity [Fatal]
  - Drug interaction [Fatal]
  - Brain oedema [Fatal]
  - Toxicity to various agents [Fatal]
  - Atonic urinary bladder [Fatal]
